FAERS Safety Report 6074437-1 (Version None)
Quarter: 2009Q1

REPORT INFORMATION
  Report Type: 
  Country: None (occurrence: None)
  Receive Date: 20090206
  Receipt Date: 20090126
  Transmission Date: 20090719
  Serious: Yes (Other)
  Sender: FDA-Public Use
  Company Number: JPI-P-005992

PATIENT
  Age: 50 Year
  Sex: Male

DRUGS (2)
  1. XYREM                    (500 MILLIGRAMS/MILLILITERS, SOLUTION) [Suspect]
     Indication: NARCOLEPSY
     Dosage: 9 GM (4.5 GM, 2 IN 1 D) ORAL
     Route: 048
     Dates: start: 20080505
  2. METHYLPHENIDATE HCL [Concomitant]

REACTIONS (4)
  - AGGRESSION [None]
  - AGITATION [None]
  - PARASOMNIA [None]
  - SLEEP TALKING [None]
